FAERS Safety Report 17793633 (Version 3)
Quarter: 2022Q3

REPORT INFORMATION
  Report Type: Spontaneous
  Country: BR (occurrence: BR)
  Receive Date: 20200515
  Receipt Date: 20220824
  Transmission Date: 20221027
  Serious: Yes (Other)
  Sender: FDA-Public Use
  Company Number: BR-BAYER-2020-048603

PATIENT
  Age: 34 Year
  Sex: Female
  Weight: 46.8 kg

DRUGS (1)
  1. DIENOGEST\ESTRADIOL VALERATE [Suspect]
     Active Substance: DIENOGEST\ESTRADIOL VALERATE
     Indication: Contraception
     Dosage: UNK UNK, QD
     Route: 048
     Dates: start: 20191108, end: 20200311

REACTIONS (14)
  - Gestational diabetes [Not Recovered/Not Resolved]
  - Pregnancy on oral contraceptive [Recovered/Resolved]
  - Drug ineffective [None]
  - Incorrect product administration duration [None]
  - Product prescribing issue [None]
  - Malaise [Recovered/Resolved]
  - Nausea [Recovered/Resolved]
  - Headache [Recovered/Resolved]
  - Diarrhoea [Recovered/Resolved]
  - Cholecystectomy [None]
  - Hepatobiliary procedural complication [None]
  - Gestational hypertension [None]
  - Vein disorder [None]
  - Malaise [None]

NARRATIVE: CASE EVENT DATE: 20191108
